FAERS Safety Report 5810967-2 (Version None)
Quarter: 2008Q3

REPORT INFORMATION
  Report Type: 
  Country: None (occurrence: None)
  Receive Date: 20080716
  Receipt Date: 20080711
  Transmission Date: 20090109
  Serious: Yes (Hospitalization)
  Sender: FDA-Public Use
  Company Number: PHHO2007US06689

PATIENT
  Sex: Male
  Weight: 131.8 kg

DRUGS (2)
  1. ZELMAC HTF+TAB [Suspect]
     Indication: CONSTIPATION
     Dosage: 12 MG, QD
     Route: 048
     Dates: start: 20070116, end: 20070402
  2. LASIX [Suspect]

REACTIONS (6)
  - DEEP VEIN THROMBOSIS [None]
  - DIZZINESS [None]
  - EYE INJURY [None]
  - FALL [None]
  - HYPERCOAGULATION [None]
  - SYNCOPE [None]
